FAERS Safety Report 24730698 (Version 1)
Quarter: 2024Q4

REPORT INFORMATION
  Report Type: Spontaneous
  Country: US (occurrence: US)
  Receive Date: 20241213
  Receipt Date: 20241213
  Transmission Date: 20250114
  Serious: No
  Sender: Harrow Health
  Company Number: US-IMP-2024001102

PATIENT
  Sex: Female

DRUGS (1)
  1. VEVYE [Suspect]
     Active Substance: CYCLOSPORINE
     Indication: Product used for unknown indication
     Route: 047

REACTIONS (5)
  - Visual impairment [Unknown]
  - Condition aggravated [Unknown]
  - Dyschromatopsia [Unknown]
  - Dizziness [Unknown]
  - Drug ineffective [Unknown]
